FAERS Safety Report 8817597 (Version 2)
Quarter: 2012Q4

REPORT INFORMATION
  Report Type: 
  Country: US (occurrence: US)
  Receive Date: 20121001
  Receipt Date: 20121116
  Transmission Date: 20130627
  Serious: Yes (Hospitalization)
  Sender: FDA-Public Use
  Company Number: US-BAYER-2012-099772

PATIENT
  Sex: Female

DRUGS (1)
  1. YAZ [Suspect]
     Dosage: UNK
     Dates: start: 20071019, end: 201112

REACTIONS (10)
  - Gallbladder disorder [None]
  - Biliary colic [None]
  - Pain [None]
  - Injury [None]
  - General physical health deterioration [None]
  - Emotional distress [None]
  - Anxiety [None]
  - Pain [None]
  - Anhedonia [None]
  - Procedural complication [None]
